FAERS Safety Report 10363375 (Version 1)
Quarter: 2014Q1

REPORT INFORMATION
  Report Type: Spontaneous
  Country: US (occurrence: None)
  Receive Date: 20140306
  Receipt Date: 20140306
  Transmission Date: 20141002
  Serious: Yes (Hospitalization, Other)
  Sender: FDA-Public Use
  Company Number: 163-21880-13061749

PATIENT
  Age: 72 Year
  Sex: Female
  Weight: 68.5 kg

DRUGS (5)
  1. REVLIMID [Suspect]
     Indication: PLASMA CELL MYELOMA
     Dosage: 21 IN 21 D
     Route: 048
     Dates: start: 20130418
  2. DEXAMETHASONE(DEXAMETHASONE)(TABLETS) [Concomitant]
  3. HYDROCODONE/ACETAMINOPHEN(REMEDEINE)(SOLUTION) [Concomitant]
  4. POTASSIUM GLUCONATE(POTASSIUM GLUCONATE)(TABLETS) [Concomitant]
  5. ZOMETA(ZOLEDRONIC ACID)(INRECTION) [Concomitant]

REACTIONS (4)
  - Diarrhoea [None]
  - Staphylococcal skin infection [None]
  - Rash [None]
  - Bone pain [None]
